FAERS Safety Report 8364796-9 (Version None)
Quarter: 2012Q1

REPORT INFORMATION
  Report Type: 
  Country: None (occurrence: None)
  Receive Date: 20120323
  Receipt Date: 20111122
  Transmission Date: 20120608
  Serious: Yes (Hospitalization)
  Sender: FDA-Public Use
  Company Number: 163-21880-11113197

PATIENT
  Sex: Male

DRUGS (1)
  1. REVLIMID [Suspect]
     Indication: MULTIPLE MYELOMA
     Dosage: 25 MG, 1 IN 1 D, PO
     Route: 048
     Dates: start: 20090201

REACTIONS (6)
  - MYELOMA RECURRENCE [None]
  - NAUSEA [None]
  - PAIN [None]
  - DRUG INEFFECTIVE [None]
  - VOMITING [None]
  - MULTIPLE MYELOMA [None]
